FAERS Safety Report 6177431-5 (Version None)
Quarter: 2009Q2

REPORT INFORMATION
  Report Type: 
  Country: None (occurrence: None)
  Receive Date: 20090501
  Receipt Date: 20090501
  Transmission Date: 20091009
  Serious: No
  Sender: FDA-Public Use
  Company Number: None

PATIENT
  Age: 80 Year
  Sex: Male
  Weight: 94.1 kg

DRUGS (19)
  1. TEMAZEPAM [Suspect]
     Indication: INSOMNIA
     Dosage: 15MG PO HS PRN
     Route: 048
     Dates: start: 20090223
  2. WARFARIN SODIUM [Concomitant]
  3. AMIODARONE [Concomitant]
  4. ASPIRIN [Concomitant]
  5. BISACODYL [Concomitant]
  6. CITALOPRAM HYDROBROMIDE [Concomitant]
  7. DOCUSATE [Concomitant]
  8. FUROSEMIDE [Concomitant]
  9. ASPART [Concomitant]
  10. LANSOPRAZOLE [Concomitant]
  11. METOPROLOL [Concomitant]
  12. MULTI-VITAMINS [Concomitant]
  13. FINASTERIDE [Concomitant]
  14. QUETIAPINE [Concomitant]
  15. SIMVASTATIN [Concomitant]
  16. TRAZODONE HCL [Concomitant]
  17. HYDROCORTISONE CREAM [Concomitant]
  18. NYSTATIN/ZINC OXIDE/HYDROCORTISONE TOPICAL [Concomitant]
  19. POTASSIUM CHLORIDE [Concomitant]

REACTIONS (1)
  - MENTAL STATUS CHANGES [None]
